FAERS Safety Report 9173925 (Version 1)
Quarter: 2013Q1

REPORT INFORMATION
  Report Type: Spontaneous
  Country: US (occurrence: US)
  Receive Date: 20130320
  Receipt Date: 20130320
  Transmission Date: 20140127
  Serious: No
  Sender: FDA-Public Use
  Company Number: US-GALDERMA-US12415629

PATIENT
  Sex: Female

DRUGS (2)
  1. VECTICAL (CALCITRIOL) OINTMENT 3 MCG/G [Suspect]
     Indication: PSORIASIS
     Route: 061
     Dates: start: 201210, end: 201210
  2. CLOBETASOL [Concomitant]
     Route: 061
     Dates: start: 201206

REACTIONS (4)
  - Skin atrophy [Recovered/Resolved]
  - Skin disorder [Recovered/Resolved]
  - Erythema [Recovered/Resolved]
  - Skin erosion [None]
